FAERS Safety Report 16242669 (Version 1)
Quarter: 2019Q2

REPORT INFORMATION
  Report Type: Other
  Country: FR (occurrence: FR)
  Receive Date: 20190426
  Receipt Date: 20190426
  Transmission Date: 20190711
  Serious: Yes (Other)
  Sender: FDA-Public Use
  Company Number: FR-DENTSPLY-2019SCDP000258

PATIENT
  Age: 67 Year
  Sex: Male
  Weight: 98 kg

DRUGS (13)
  1. RAMIPRIL. [Suspect]
     Active Substance: RAMIPRIL
     Indication: PRODUCT USED FOR UNKNOWN INDICATION
     Dosage: UNK
  2. BRINTELLIX [Concomitant]
     Active Substance: VORTIOXETINE HYDROBROMIDE
     Indication: PRODUCT USED FOR UNKNOWN INDICATION
     Dosage: UNK
  3. KARDEGIC [Concomitant]
     Active Substance: ASPIRIN DL-LYSINE
     Indication: PRODUCT USED FOR UNKNOWN INDICATION
     Dosage: UNK
  4. XYLOCAINE WITH ADRENALINE (EPINEPHRINE) [Suspect]
     Active Substance: EPINEPHRINE BITARTRATE\LIDOCAINE HYDROCHLORIDE
     Indication: ANGIOPLASTY
     Dosage: 1 ML,TOTAL
     Route: 058
     Dates: start: 20190325, end: 20190325
  5. ATORVASTATINE                      /01326101/ [Concomitant]
     Active Substance: ATORVASTATIN
     Indication: PRODUCT USED FOR UNKNOWN INDICATION
     Dosage: UNK
  6. IOMERON [Suspect]
     Active Substance: IOMEPROL
     Indication: ANGIOPLASTY
     Dosage: 67 ML, TOTAL,SOLUTION INJECTABLE
     Route: 013
     Dates: start: 20190325, end: 20190325
  7. ISOSORBIDE MEDISOL [Suspect]
     Active Substance: ISOSORBIDE DINITRATE
     Indication: ANGIOPLASTY
     Dosage: 0.5 MG, TOTAL
     Route: 022
     Dates: start: 20190325, end: 20190325
  8. EPHEDRINE. [Suspect]
     Active Substance: EPHEDRINE
     Indication: ANGIOPLASTY
     Dosage: 9 MG, TOTAL
     Route: 042
     Dates: start: 20190325, end: 20190325
  9. HEPARIN SODIUM. [Suspect]
     Active Substance: HEPARIN SODIUM
     Indication: ANGIOPLASTY
     Dosage: 5000 IU,TOTAL
     Route: 022
     Dates: start: 20190325, end: 20190325
  10. BRILIQUE [Concomitant]
     Active Substance: TICAGRELOR
     Indication: PRODUCT USED FOR UNKNOWN INDICATION
     Dosage: UNK
  11. STAGID [Concomitant]
     Active Substance: METFORMIN PAMOATE
     Indication: PRODUCT USED FOR UNKNOWN INDICATION
     Dosage: UNK
  12. ISOPTINE [Suspect]
     Active Substance: VERAPAMIL HYDROCHLORIDE
     Indication: ANGIOPLASTY
     Dosage: 2.5 MG, TOTAL
     Route: 022
     Dates: start: 20190325, end: 20190325
  13. BISOPROLOL HEMIFUMARATE [Concomitant]
     Active Substance: BISOPROLOL FUMARATE
     Indication: PRODUCT USED FOR UNKNOWN INDICATION
     Dosage: UNK

REACTIONS (2)
  - Erythema [Recovered/Resolved]
  - Pruritus [Recovered/Resolved]

NARRATIVE: CASE EVENT DATE: 20190326
